FAERS Safety Report 10455495 (Version 2)
Quarter: 2016Q1

REPORT INFORMATION
  Report Type: Report from Study
  Country: US (occurrence: US)
  Receive Date: 20140916
  Receipt Date: 20160309
  Transmission Date: 20160525
  Serious: Yes (Other)
  Sender: FDA-Public Use
  Company Number: US-ROCHE-1414685

PATIENT
  Sex: Male
  Weight: 115.4 kg

DRUGS (13)
  1. CENTRUM SILVER ULTRA MEN^S [Concomitant]
  2. LIPITOR [Concomitant]
     Active Substance: ATORVASTATIN CALCIUM
     Route: 065
  3. LEVOXYL [Concomitant]
     Active Substance: LEVOTHYROXINE SODIUM
     Route: 048
  4. VITAMIN C [Concomitant]
     Active Substance: ASCORBIC ACID
  5. CORTEF [Concomitant]
     Active Substance: HYDROCORTISONE
     Dosage: 20MG IN AM AND 10MG IN PM
     Route: 065
  6. FLUOXETINE [Concomitant]
     Active Substance: FLUOXETINE HYDROCHLORIDE
     Route: 065
  7. VITAMIN B12 [Concomitant]
     Active Substance: CYANOCOBALAMIN
  8. BABY ASPIRIN [Concomitant]
     Active Substance: ASPIRIN
  9. LOSARTAN. [Concomitant]
     Active Substance: LOSARTAN
     Route: 065
  10. HYDROCHLOROTHIAZIDE. [Concomitant]
     Active Substance: HYDROCHLOROTHIAZIDE
     Route: 065
  11. ZYRTEC [Concomitant]
     Active Substance: CETIRIZINE HYDROCHLORIDE
     Route: 065
  12. NUTROPIN AQ [Suspect]
     Active Substance: SOMATROPIN
     Indication: HYPOPITUITARISM
     Route: 058
     Dates: start: 20010723
  13. ANDROGEL [Concomitant]
     Active Substance: TESTOSTERONE
     Route: 065

REACTIONS (6)
  - Fatigue [Unknown]
  - Snoring [Unknown]
  - Sleep apnoea syndrome [Unknown]
  - Ear neoplasm malignant [Unknown]
  - Visual impairment [Unknown]
  - Asthenia [Unknown]
